FAERS Safety Report 16409773 (Version 1)
Quarter: 2019Q2

REPORT INFORMATION
  Report Type: Spontaneous
  Country: US (occurrence: US)
  Receive Date: 20190610
  Receipt Date: 20190610
  Transmission Date: 20190711
  Serious: No
  Sender: FDA-Public Use
  Company Number: US-PFIZER INC-2019244268

PATIENT
  Sex: Female

DRUGS (1)
  1. XANAX [Suspect]
     Active Substance: ALPRAZOLAM
     Indication: CYCLIC VOMITING SYNDROME
     Dosage: UNK

REACTIONS (3)
  - Condition aggravated [Unknown]
  - Product use in unapproved indication [Unknown]
  - Off label use [Unknown]
